APPROVED DRUG PRODUCT: FLUCYTOSINE
Active Ingredient: FLUCYTOSINE
Strength: 500MG
Dosage Form/Route: CAPSULE;ORAL
Application: A204652 | Product #002 | TE Code: AB
Applicant: NOVEL LABORATORIES INC
Approved: Jul 7, 2017 | RLD: No | RS: No | Type: RX